FAERS Safety Report 22614561 (Version 2)
Quarter: 2023Q4

REPORT INFORMATION
  Report Type: Spontaneous
  Country: CA (occurrence: CA)
  Receive Date: 20230619
  Receipt Date: 20231103
  Transmission Date: 20240110
  Serious: Yes (Other)
  Sender: FDA-Public Use
  Company Number: CA-TAKEDA-2023TUS059363

PATIENT
  Age: 70 Year

DRUGS (1)
  1. HUMAN IMMUNOGLOBULIN G [Suspect]
     Active Substance: HUMAN IMMUNOGLOBULIN G
     Indication: Product used for unknown indication
     Dosage: UNK
     Route: 042

REACTIONS (6)
  - Chills [Unknown]
  - Flushing [Not Recovered/Not Resolved]
  - Hypertension [Unknown]
  - Malaise [Unknown]
  - Tremor [Unknown]
  - Blood pressure increased [Recovering/Resolving]
